FAERS Safety Report 18275295 (Version 2)
Quarter: 2020Q4

REPORT INFORMATION
  Report Type: Report from Study
  Country: FR (occurrence: FR)
  Receive Date: 20200916
  Receipt Date: 20201113
  Transmission Date: 20210113
  Serious: Yes (Hospitalization)
  Sender: FDA-Public Use
  Company Number: FR-MORPHOSYS AG-2020-MOR000772-FR

PATIENT

DRUGS (21)
  1. ZELITREX [Concomitant]
     Active Substance: VALACYCLOVIR HYDROCHLORIDE
     Indication: INFECTION PROPHYLAXIS
     Dosage: 500 MG, BID
     Route: 048
     Dates: start: 20200205
  2. DOLIPRANE [Concomitant]
     Active Substance: ACETAMINOPHEN
     Indication: PAIN PROPHYLAXIS
     Dosage: 1 G, PRN
     Route: 048
     Dates: start: 20200331
  3. ZARZIO [Concomitant]
     Active Substance: FILGRASTIM
     Indication: NEUTROPENIA
     Dosage: 30 IU, QD
     Route: 058
     Dates: start: 20200308, end: 20200310
  4. ZARZIO [Concomitant]
     Active Substance: FILGRASTIM
     Dosage: 30 UNK, QD
     Route: 058
     Dates: start: 20200513, end: 20200514
  5. TAFASITAMAB [Suspect]
     Active Substance: TAFASITAMAB
     Indication: DIFFUSE LARGE B-CELL LYMPHOMA
     Dosage: 12 MG/KG, UNK
     Dates: start: 20200204, end: 20200901
  6. LEVOTHYROX [Concomitant]
     Active Substance: LEVOTHYROXINE
     Indication: THYROIDECTOMY
     Dosage: 10 ?G, QD
     Route: 048
     Dates: start: 199902
  7. OROZAMUDOL [Concomitant]
     Active Substance: TRAMADOL
     Indication: BACK PAIN
     Dosage: 50 MG, PRN
     Route: 048
     Dates: start: 20191011
  8. PRIMPERAN [Concomitant]
     Active Substance: METOCLOPRAMIDE HYDROCHLORIDE
     Dosage: 10 MG, PRN
     Route: 048
     Dates: start: 20200303, end: 20200324
  9. LERCANIDIPINE [Concomitant]
     Active Substance: LERCANIDIPINE
     Indication: HYPERTENSION
     Dosage: 10 MG, QD
     Route: 048
     Dates: start: 2005
  10. FUNGIZONE [Concomitant]
     Active Substance: AMPHOTERICIN B
     Indication: MUCOSAL INFLAMMATION
     Dosage: 1 MOUTHWASH, 4 TIMES DAILY
     Route: 061
     Dates: start: 20200512, end: 20200526
  11. PRIMPERAN [Concomitant]
     Active Substance: METOCLOPRAMIDE HYDROCHLORIDE
     Dosage: 10 MG, BID
     Route: 048
     Dates: start: 20200325
  12. CALCIDOSE [CALCIUM CARBONATE] [Concomitant]
     Active Substance: CALCIUM CARBONATE
     Indication: OSTEOPOROSIS PROPHYLAXIS
     Dosage: 500 MG, QD
     Route: 048
     Dates: start: 20200206, end: 20200207
  13. ZARZIO [Concomitant]
     Active Substance: FILGRASTIM
     Dosage: 30 UNK, QD
     Route: 058
     Dates: start: 20200505, end: 20200507
  14. MOVICOL [Concomitant]
     Active Substance: POLYETHYLENE GLYCOL 3350\POTASSIUM CHLORIDE\SODIUM BICARBONATE\SODIUM CHLORIDE
     Indication: CONSTIPATION PROPHYLAXIS
     Dosage: 1 BAG, PRN
     Route: 048
     Dates: start: 20200421, end: 20200528
  15. BENDAMUSTINE [Suspect]
     Active Substance: BENDAMUSTINE
     Indication: DIFFUSE LARGE B-CELL LYMPHOMA
     Dosage: 180 MG/M2, MONTHLY
     Dates: start: 20200205, end: 20200624
  16. XANAX [Concomitant]
     Active Substance: ALPRAZOLAM
     Indication: DEPRESSION
     Dosage: 0.25 MG, QD
     Route: 048
     Dates: start: 1993
  17. ENTECAVIR. [Concomitant]
     Active Substance: ENTECAVIR
     Indication: PROPHYLAXIS
     Dosage: 1 MG, QD
     Route: 048
     Dates: start: 20200207
  18. FENTANYL. [Concomitant]
     Active Substance: FENTANYL
     Indication: BONE PAIN
     Dosage: 25 UG/H, QD
     Route: 062
     Dates: start: 20200421
  19. PRIMPERAN [Concomitant]
     Active Substance: METOCLOPRAMIDE HYDROCHLORIDE
     Indication: PROPHYLAXIS OF NAUSEA AND VOMITING
     Dosage: 10 MG, ONCE
     Route: 042
     Dates: start: 20200206, end: 20200206
  20. BICARBONATE [Concomitant]
     Active Substance: SODIUM BICARBONATE
     Indication: PROPHYLAXIS
     Dosage: 1 DF, 4 TIMES PER DAY
     Route: 061
     Dates: start: 20200310
  21. ZARZIO [Concomitant]
     Active Substance: FILGRASTIM
     Dosage: 30 IU, QD
     Route: 058
     Dates: start: 20200406, end: 20200409

REACTIONS (1)
  - Pyelonephritis acute [Recovered/Resolved]

NARRATIVE: CASE EVENT DATE: 20200903
